FAERS Safety Report 9542112 (Version 1)
Quarter: 2013Q3

REPORT INFORMATION
  Report Type: Spontaneous
  Country: CA (occurrence: CA)
  Receive Date: 20130923
  Receipt Date: 20130923
  Transmission Date: 20140515
  Serious: Yes (Other)
  Sender: FDA-Public Use
  Company Number: CA-ASTELLAS-2013US009749

PATIENT
  Sex: Male

DRUGS (2)
  1. XTANDI [Suspect]
     Indication: PRODUCT USED FOR UNKNOWN INDICATION
     Dosage: UNK
     Route: 048
  2. XTANDI [Suspect]
     Dosage: UNK
     Route: 048

REACTIONS (3)
  - Wrong technique in drug usage process [Unknown]
  - Haemoptysis [Unknown]
  - Throat irritation [Not Recovered/Not Resolved]
